FAERS Safety Report 7499248-1 (Version None)
Quarter: 2011Q2

REPORT INFORMATION
  Report Type: 
  Country: None (occurrence: None)
  Receive Date: 20110524
  Receipt Date: 20110517
  Transmission Date: 20111010
  Serious: Yes (Other)
  Sender: FDA-Public Use
  Company Number: FR-GILEAD-2010-0031247

PATIENT
  Sex: Female
  Weight: 55 kg

DRUGS (2)
  1. DESLORATADINE [Concomitant]
     Indication: HYPERSENSITIVITY
     Dates: start: 20100501, end: 20100630
  2. VIREAD [Suspect]
     Indication: CHRONIC HEPATITIS
     Route: 048
     Dates: start: 20100427

REACTIONS (2)
  - PREGNANCY [None]
  - POSTPARTUM HAEMORRHAGE [None]
